FAERS Safety Report 9819857 (Version 1)
Quarter: 2013Q4

REPORT INFORMATION
  Report Type: Spontaneous
  Country: US (occurrence: None)
  Receive Date: 20131223
  Receipt Date: 20131223
  Transmission Date: 20140711
  Serious: No
  Sender: FDA-Public Use
  Company Number: 219383

PATIENT
  Sex: Female

DRUGS (1)
  1. PICATO GEL [Suspect]
     Indication: PRECANCEROUS SKIN LESION
     Dates: start: 20121022

REACTIONS (5)
  - Blister [None]
  - Pain [None]
  - Headache [None]
  - Diarrhoea [None]
  - Off label use [None]
